FAERS Safety Report 6686845-6 (Version None)
Quarter: 2010Q2

REPORT INFORMATION
  Report Type: 
  Country: None (occurrence: None)
  Receive Date: 20100414
  Receipt Date: 20100331
  Transmission Date: 20101027
  Serious: Yes (Other)
  Sender: FDA-Public Use
  Company Number: RU-1181418

PATIENT
  Sex: Female

DRUGS (2)
  1. TRAVATAN [Suspect]
     Dosage: OPTHALMIC
     Route: 047
  2. FOTIL FORTE (TIMPILO) [Concomitant]

REACTIONS (2)
  - EYE PAIN [None]
  - VISUAL FIELD DEFECT [None]
